FAERS Safety Report 8279275 (Version 4)
Quarter: 2013Q2

REPORT INFORMATION
  Report Type: Spontaneous
  Country: US (occurrence: US)
  Receive Date: 20111208
  Receipt Date: 20130510
  Transmission Date: 20140414
  Serious: Yes (Hospitalization, Other)
  Sender: FDA-Public Use
  Company Number: US-BAYER-2011-114250

PATIENT
  Age: 28 Year
  Sex: Female
  Weight: 117.91 kg

DRUGS (29)
  1. YAZ [Suspect]
     Indication: PREMENSTRUAL SYNDROME
     Dosage: UNK
     Route: 048
     Dates: start: 2009, end: 2009
  2. YAZ [Suspect]
     Indication: PREMENSTRUAL DYSPHORIC DISORDER
  3. LAMICTAL [Concomitant]
     Dosage: 100 MG, UNK
     Route: 048
  4. DOXEPIN HCL [Concomitant]
     Dosage: 100 MG, EVERY MORNING
     Route: 048
  5. EFFEXOR XR [Concomitant]
     Dosage: 150 MG, UNK
     Route: 048
  6. ABILIFY [Concomitant]
     Dosage: 40 MG, EVERY MORNING
     Route: 048
  7. OXYBUTYNIN [Concomitant]
     Dosage: 5 MG, UNK
     Route: 048
  8. OXYBUTYNIN [Concomitant]
     Dosage: 5 MG, UNK
     Dates: start: 20090415
  9. NEURONTIN [Concomitant]
     Dosage: 300 MG, TID
     Route: 048
  10. METHADONE [Concomitant]
     Dosage: 5 MG, QID
     Route: 048
  11. FENTANYL [Concomitant]
     Dosage: 25 ?G, EVERY THREE DAYS
     Route: 062
  12. TRAMADOL [Concomitant]
     Dosage: 50 MG, UNK
     Route: 048
  13. LASIX [Concomitant]
     Dosage: 10 MG, EVERY MORNING
     Route: 048
  14. AZITHROMYCIN [Concomitant]
     Dosage: 250 MG, UNK
     Route: 048
     Dates: start: 20090314
  15. PROMETHAZINE [Concomitant]
     Dosage: 25 MG, UNK
     Route: 048
     Dates: start: 20090314
  16. CIPROFLOXACIN [Concomitant]
     Indication: URINARY TRACT INFECTION
     Dosage: 500 MG, UNK
     Route: 048
     Dates: start: 20090501
  17. PHENERGAN WITH CODEINE [Concomitant]
     Dosage: UNK, PRN
     Route: 048
     Dates: start: 20090520
  18. ALBUTEROL [Concomitant]
     Indication: ASTHMA
     Dosage: UNK
     Dates: start: 1983
  19. IBUPROFEN [Concomitant]
     Dosage: UNK
     Dates: start: 1983
  20. CEFDINIR [Concomitant]
     Dosage: 300 MG, UNK
     Dates: start: 20090415
  21. HYDROCODONE/HOMATROPINE [Concomitant]
     Dosage: 5-1.5
     Dates: start: 20090425
  22. NASONEX [Concomitant]
     Dosage: 50 MCQ
     Dates: start: 20090425
  23. TORADOL [Concomitant]
     Dosage: 30 MG, UNK
     Route: 041
     Dates: start: 20090520
  24. PROTONIX [Concomitant]
  25. PEPCID [Concomitant]
  26. ZITHROMAX [Concomitant]
     Indication: BRONCHITIS
  27. DOXYCYCLINE [Concomitant]
  28. ZANTAC [Concomitant]
  29. ATARAX [Concomitant]

REACTIONS (9)
  - Deep vein thrombosis [None]
  - Pulmonary embolism [None]
  - Injury [None]
  - Pain [None]
  - Thrombosis [None]
  - Lung disorder [None]
  - Migraine [None]
  - Depression [None]
  - Anxiety [None]
